FAERS Safety Report 11700497 (Version 1)
Quarter: 2015Q4

REPORT INFORMATION
  Report Type: Spontaneous
  Country: RW (occurrence: RW)
  Receive Date: 20151105
  Receipt Date: 20151105
  Transmission Date: 20160304
  Serious: Yes (Other)
  Sender: FDA-Public Use
  Company Number: RW-WATSON-2015-21098

PATIENT
  Age: 52 Year
  Sex: Male

DRUGS (1)
  1. HALOPERIDOL (UNKNOWN) [Suspect]
     Active Substance: HALOPERIDOL
     Indication: PSYCHOTIC DISORDER
     Dosage: CHRONIC HALOPERIDOL USE
     Route: 065

REACTIONS (1)
  - Dyskinesia [Unknown]
